FAERS Safety Report 5481207-1 (Version None)
Quarter: 2007Q4

REPORT INFORMATION
  Report Type: 
  Country: None (occurrence: None)
  Receive Date: 20071010
  Receipt Date: 20071005
  Transmission Date: 20080405
  Serious: Yes (Hospitalization)
  Sender: FDA-Public Use
  Company Number: PHHO2007US16150

PATIENT
  Age: 85 Year
  Sex: Female

DRUGS (2)
  1. NATEGLINIDE [Suspect]
     Indication: GLUCOSE TOLERANCE IMPAIRED
     Route: 048
  2. DIOVAN [Suspect]
     Indication: CARDIOVASCULAR DISORDER
     Dosage: CODE NOT BROKEN
     Route: 048

REACTIONS (4)
  - LIPOMA [None]
  - LIPOMA EXCISION [None]
  - LITHOTRIPSY [None]
  - OBSTRUCTIVE UROPATHY [None]
